FAERS Safety Report 15937414 (Version 1)
Quarter: 2019Q1

REPORT INFORMATION
  Report Type: Spontaneous
  Country: US (occurrence: US)
  Receive Date: 20190208
  Receipt Date: 20190208
  Transmission Date: 20190417
  Serious: No
  Sender: FDA-Public Use
  Company Number: None

PATIENT
  Age: 66 Year
  Sex: Male
  Weight: 110.25 kg

DRUGS (1)
  1. BUPROPION HCL XL 24HR 150M G TAB LUPI [Suspect]
     Active Substance: BUPROPION HYDROCHLORIDE
     Indication: DEPRESSION
     Dosage: ?          QUANTITY:1 TABLET(S);?
     Route: 048
     Dates: start: 20190206, end: 20190207

REACTIONS (5)
  - Hot flush [None]
  - Fatigue [None]
  - Dizziness [None]
  - Product substitution issue [None]
  - Muscle tightness [None]

NARRATIVE: CASE EVENT DATE: 20190206
